FAERS Safety Report 8493744-6 (Version None)
Quarter: 2012Q3

REPORT INFORMATION
  Report Type: 
  Country: None (occurrence: None)
  Receive Date: 20120706
  Receipt Date: 20120622
  Transmission Date: 20120928
  Serious: No
  Sender: FDA-Public Use
  Company Number: US-ASTRAZENECA-2012SE42526

PATIENT
  Age: 59 Year
  Sex: Female

DRUGS (1)
  1. SEROQUEL [Suspect]
     Route: 048

REACTIONS (8)
  - MENTAL DISORDER [None]
  - PANIC ATTACK [None]
  - SYNCOPE [None]
  - SOCIAL AVOIDANT BEHAVIOUR [None]
  - ANXIETY [None]
  - DEPRESSION [None]
  - HYPOTENSION [None]
  - DRUG DOSE OMISSION [None]
